FAERS Safety Report 18975702 (Version 2)
Quarter: 2021Q2

REPORT INFORMATION
  Report Type: Spontaneous
  Country: JP (occurrence: JP)
  Receive Date: 20210305
  Receipt Date: 20210405
  Transmission Date: 20210717
  Serious: Yes (Other)
  Sender: FDA-Public Use
  Company Number: JP-TEVA-2021-JP-000879J

PATIENT
  Age: 86 Year
  Sex: Male

DRUGS (12)
  1. DUTASTERIDE. [Concomitant]
     Active Substance: DUTASTERIDE
     Route: 065
  2. AMLODIPINE OD TABLET 10MG ^TYK^ [Suspect]
     Active Substance: AMLODIPINE BESYLATE
     Indication: PRODUCT USED FOR UNKNOWN INDICATION
     Dosage: 5 MILLIGRAM DAILY;
     Route: 065
  3. CANDESARTAN TABLET 8MG ^TEVA^ [Suspect]
     Active Substance: CANDESARTAN
     Route: 065
     Dates: start: 20201107
  4. SILODOSIN. [Concomitant]
     Active Substance: SILODOSIN
     Dosage: 8 MILLIGRAM DAILY;
     Route: 065
  5. QUETIAPINE TABLET 200MG ^TEVA^ [Suspect]
     Active Substance: QUETIAPINE
     Indication: DEMENTIA
     Route: 048
  6. MEMANTINE HYDROCHLORIDE. [Concomitant]
     Active Substance: MEMANTINE HYDROCHLORIDE
     Route: 065
  7. YOKUKANSANKACHIMPIHANGE [Concomitant]
     Route: 065
  8. AMLODIPINE OD TABLET 10MG ^TYK^ [Suspect]
     Active Substance: AMLODIPINE BESYLATE
     Dosage: 10 MILLIGRAM DAILY;
     Route: 065
     Dates: start: 20210220
  9. CANDESARTAN TABLET 8MG ^TEVA^ [Suspect]
     Active Substance: CANDESARTAN
     Indication: HYPERTENSION
     Dosage: 4 MILLIGRAM DAILY;
     Route: 065
     Dates: start: 20201019
  10. BAYASPIRIN [Concomitant]
     Active Substance: ASPIRIN
     Dosage: 1 DOSAGE FORMS DAILY;
     Route: 065
  11. QUETIAPINE TABLET 200MG ^TEVA^ [Suspect]
     Active Substance: QUETIAPINE
     Route: 048
  12. FAMOTIDINE. [Concomitant]
     Active Substance: FAMOTIDINE
     Dosage: 20 MILLIGRAM DAILY;
     Route: 065

REACTIONS (5)
  - Loss of consciousness [Unknown]
  - Blood pressure inadequately controlled [Unknown]
  - Bradycardia [Unknown]
  - Product use in unapproved indication [Unknown]
  - Blood potassium decreased [Unknown]

NARRATIVE: CASE EVENT DATE: 20201122
